FAERS Safety Report 6127103-8 (Version None)
Quarter: 2009Q1

REPORT INFORMATION
  Report Type: 
  Country: None (occurrence: None)
  Receive Date: 20090318
  Receipt Date: 20090303
  Transmission Date: 20090719
  Serious: Yes (Hospitalization)
  Sender: FDA-Public Use
  Company Number: 2009AL001368

PATIENT
  Age: 65 Year
  Sex: Female

DRUGS (5)
  1. DICLOFENAC SODIUM [Suspect]
     Indication: ANALGESIC THERAPY
     Dosage: 75 MG;BID;PO
     Route: 048
     Dates: start: 20080901, end: 20081009
  2. FERROUS SULFATE TAB [Concomitant]
  3. FOLIC ACID [Concomitant]
  4. AMLODIPINE BESYLATE [Concomitant]
  5. FLUOXETINE HCL [Concomitant]

REACTIONS (1)
  - ANAEMIA MACROCYTIC [None]
